FAERS Safety Report 14583039 (Version 2)
Quarter: 2018Q2

REPORT INFORMATION
  Report Type: Report from Study
  Country: JP (occurrence: JP)
  Receive Date: 20180228
  Receipt Date: 20180625
  Transmission Date: 20180711
  Serious: Yes (Other)
  Sender: FDA-Public Use
  Company Number: JP-CELGENEUS-JPN-20171204301

PATIENT
  Age: 66 Year
  Sex: Female

DRUGS (37)
  1. GEMCITABINE [Suspect]
     Active Substance: GEMCITABINE\GEMCITABINE HYDROCHLORIDE
     Dosage: 1200 MILLIGRAM
     Route: 041
     Dates: start: 20180207, end: 20180207
  2. GEMCITABINE [Suspect]
     Active Substance: GEMCITABINE\GEMCITABINE HYDROCHLORIDE
     Dosage: 1200 MILLIGRAM
     Route: 041
     Dates: start: 20180314, end: 20180314
  3. CISPLATIN. [Suspect]
     Active Substance: CISPLATIN
     Indication: ADULT T-CELL LYMPHOMA/LEUKAEMIA
     Dosage: 100 MILLIGRAM
     Route: 041
     Dates: start: 20171215, end: 20171215
  4. CISPLATIN. [Suspect]
     Active Substance: CISPLATIN
     Dosage: 100 MILLIGRAM
     Route: 041
     Dates: start: 20180307, end: 20180307
  5. K-SUPPLY [Concomitant]
     Active Substance: POTASSIUM CHLORIDE
     Indication: ADVERSE EVENT
     Route: 048
  6. GEMCITABINE [Suspect]
     Active Substance: GEMCITABINE\GEMCITABINE HYDROCHLORIDE
     Dosage: 1200 MILLIGRAM
     Route: 041
     Dates: start: 20180214, end: 20180214
  7. CISPLATIN. [Suspect]
     Active Substance: CISPLATIN
     Dosage: 100 MILLIGRAM
     Route: 041
     Dates: start: 20180418, end: 20180418
  8. DEXART [Suspect]
     Active Substance: DEXAMETHASONE SODIUM PHOSPHATE
     Dosage: 39.6 MILLIGRAM
     Route: 041
     Dates: start: 20180418, end: 20180418
  9. DECADRON [Suspect]
     Active Substance: DEXAMETHASONE
     Dosage: 40 MILLIGRAM
     Route: 048
     Dates: start: 20180111, end: 20180113
  10. GEMCITABINE [Suspect]
     Active Substance: GEMCITABINE\GEMCITABINE HYDROCHLORIDE
     Indication: ADULT T-CELL LYMPHOMA/LEUKAEMIA
     Dosage: 1250 MILLIGRAM
     Route: 041
     Dates: start: 20171215, end: 20171215
  11. GEMCITABINE [Suspect]
     Active Substance: GEMCITABINE\GEMCITABINE HYDROCHLORIDE
     Dosage: 1200 MILLIGRAM
     Route: 041
     Dates: start: 20180425, end: 20180425
  12. CISPLATIN. [Suspect]
     Active Substance: CISPLATIN
     Dosage: 100 MILLIGRAM
     Route: 041
     Dates: start: 20180207, end: 20180207
  13. DEXART [Suspect]
     Active Substance: DEXAMETHASONE SODIUM PHOSPHATE
     Indication: ADULT T-CELL LYMPHOMA/LEUKAEMIA
     Dosage: 39.6 MILLIGRAM
     Route: 041
     Dates: start: 20171215, end: 20171215
  14. DEXART [Suspect]
     Active Substance: DEXAMETHASONE SODIUM PHOSPHATE
     Dosage: 39.6 MILLIGRAM
     Route: 041
     Dates: start: 20180110, end: 20180110
  15. DEXART [Suspect]
     Active Substance: DEXAMETHASONE SODIUM PHOSPHATE
     Dosage: 39.6 MILLIGRAM
     Route: 041
     Dates: start: 20180516, end: 20180516
  16. DECADRON [Suspect]
     Active Substance: DEXAMETHASONE
     Dosage: 40 MILLIGRAM
     Route: 048
     Dates: start: 20180419, end: 20180421
  17. DECADRON [Suspect]
     Active Substance: DEXAMETHASONE
     Dosage: 40 MILLIGRAM
     Route: 048
     Dates: start: 20180517, end: 20180519
  18. PREDNISOLONE. [Concomitant]
     Active Substance: PREDNISOLONE
     Indication: SKIN LESION
     Dosage: 10 MILLIGRAM
     Route: 065
  19. CISPLATIN. [Suspect]
     Active Substance: CISPLATIN
     Dosage: 100 MILLIGRAM
     Route: 041
     Dates: start: 20180516, end: 20180516
  20. DEXART [Suspect]
     Active Substance: DEXAMETHASONE SODIUM PHOSPHATE
     Dosage: 39.6 MILLIGRAM
     Route: 041
     Dates: start: 20180207, end: 20180207
  21. DEXART [Suspect]
     Active Substance: DEXAMETHASONE SODIUM PHOSPHATE
     Dosage: 39.6 MILLIGRAM
     Route: 041
     Dates: start: 20180307, end: 20180307
  22. PREDNISOLONE. [Concomitant]
     Active Substance: PREDNISOLONE
     Dosage: 10 MILLIGRAM
     Route: 048
     Dates: start: 20171213
  23. CILOSTAZOL. [Concomitant]
     Active Substance: CILOSTAZOL
     Indication: THROMBOSIS PROPHYLAXIS
     Route: 065
     Dates: start: 20171128
  24. FILGRASTIM [Concomitant]
     Active Substance: FILGRASTIM
     Indication: ADVERSE EVENT
     Route: 058
  25. REVLIMID [Suspect]
     Active Substance: LENALIDOMIDE
     Indication: ADULT T-CELL LYMPHOMA/LEUKAEMIA
     Dosage: 20 MILLIGRAM
     Route: 048
     Dates: start: 20171128, end: 20171214
  26. GEMCITABINE [Suspect]
     Active Substance: GEMCITABINE\GEMCITABINE HYDROCHLORIDE
     Dosage: 600 MILLIGRAM
     Route: 041
     Dates: start: 20171222, end: 20171222
  27. GEMCITABINE [Suspect]
     Active Substance: GEMCITABINE\GEMCITABINE HYDROCHLORIDE
     Dosage: 1200 MILLIGRAM
     Route: 041
     Dates: start: 20180110, end: 20180110
  28. GEMCITABINE [Suspect]
     Active Substance: GEMCITABINE\GEMCITABINE HYDROCHLORIDE
     Dosage: 1200 MILLIGRAM
     Route: 041
     Dates: start: 20180418, end: 20180418
  29. GEMCITABINE [Suspect]
     Active Substance: GEMCITABINE\GEMCITABINE HYDROCHLORIDE
     Dosage: 1200 MILLIGRAM
     Route: 041
     Dates: start: 20180516, end: 20180516
  30. GEMCITABINE [Suspect]
     Active Substance: GEMCITABINE\GEMCITABINE HYDROCHLORIDE
     Dosage: 1200 MILLIGRAM
     Route: 041
     Dates: start: 20180523, end: 20180523
  31. GEMCITABINE [Suspect]
     Active Substance: GEMCITABINE\GEMCITABINE HYDROCHLORIDE
     Dosage: 1200 MILLIGRAM
     Route: 041
     Dates: start: 20180117, end: 20180117
  32. GEMCITABINE [Suspect]
     Active Substance: GEMCITABINE\GEMCITABINE HYDROCHLORIDE
     Dosage: 1200 MILLIGRAM
     Route: 041
     Dates: start: 20180307, end: 20180307
  33. CISPLATIN. [Suspect]
     Active Substance: CISPLATIN
     Dosage: 100 MILLIGRAM
     Route: 041
     Dates: start: 20170110, end: 20180110
  34. DECADRON [Suspect]
     Active Substance: DEXAMETHASONE
     Indication: ADULT T-CELL LYMPHOMA/LEUKAEMIA
     Dosage: 40 MILLIGRAM
     Route: 048
     Dates: start: 20171216, end: 20171218
  35. DECADRON [Suspect]
     Active Substance: DEXAMETHASONE
     Dosage: 40 MILLIGRAM
     Route: 048
     Dates: start: 20180208, end: 20180210
  36. DECADRON [Suspect]
     Active Substance: DEXAMETHASONE
     Dosage: 40 MILLIGRAM
     Route: 048
     Dates: start: 20180308, end: 20180310
  37. PREDNISOLONE. [Concomitant]
     Active Substance: PREDNISOLONE
     Indication: ADVERSE EVENT
     Dosage: 5 MILLIGRAM
     Route: 048
     Dates: start: 20171128, end: 2017

REACTIONS (7)
  - Dermatitis exfoliative generalised [Recovered/Resolved]
  - Bone marrow failure [Recovered/Resolved]
  - Bone marrow failure [Recovered/Resolved]
  - Anaemia [Recovered/Resolved]
  - Tachycardia [Not Recovered/Not Resolved]
  - Hypokalaemia [Recovered/Resolved]
  - Hypokalaemia [Recovered/Resolved]

NARRATIVE: CASE EVENT DATE: 20171128
